FAERS Safety Report 11083536 (Version 2)
Quarter: 2015Q2

REPORT INFORMATION
  Report Type: Spontaneous
  Country: US (occurrence: US)
  Receive Date: 20150501
  Receipt Date: 20150510
  Transmission Date: 20150821
  Serious: Yes (Other)
  Sender: FDA-Public Use
  Company Number: US-PFIZER INC-2015141355

PATIENT
  Sex: Female

DRUGS (1)
  1. ADVIL [Suspect]
     Active Substance: IBUPROFEN
     Indication: PAIN
     Dosage: UNK

REACTIONS (11)
  - Haemorrhage [Unknown]
  - Iron deficiency anaemia [Unknown]
  - Weight decreased [Unknown]
  - Anaemia [Unknown]
  - Gastrointestinal disorder [Unknown]
  - Pain [Not Recovered/Not Resolved]
  - Apparent death [Unknown]
  - Malaise [Unknown]
  - Internal haemorrhage [Unknown]
  - Activities of daily living impaired [Unknown]
  - Impaired driving ability [Unknown]
